FAERS Safety Report 22794362 (Version 3)
Quarter: 2025Q3

REPORT INFORMATION
  Report Type: Report from Study
  Country: US (occurrence: US)
  Receive Date: 20230807
  Receipt Date: 20250716
  Transmission Date: 20251021
  Serious: Yes (Other)
  Sender: NOVARTIS
  Company Number: US-002147023-NVSC2023US171821

PATIENT
  Age: 7 Year
  Sex: Female

DRUGS (2)
  1. ILARIS [Suspect]
     Active Substance: CANAKINUMAB
     Indication: Still^s disease
     Dosage: 0.9 ML, QMO
     Route: 058
     Dates: start: 202209, end: 202302
  2. ILARIS [Suspect]
     Active Substance: CANAKINUMAB
     Dosage: 1 ML, QMO
     Route: 058
     Dates: start: 202304

REACTIONS (2)
  - Still^s disease [Unknown]
  - Relapsing fever [Unknown]

NARRATIVE: CASE EVENT DATE: 20230201
